FAERS Safety Report 14625292 (Version 1)
Quarter: 2018Q1

REPORT INFORMATION
  Report Type: Spontaneous
  Country: US (occurrence: US)
  Receive Date: 20180312
  Receipt Date: 20180312
  Transmission Date: 20180509
  Serious: Yes (Hospitalization)
  Sender: FDA-Public Use
  Company Number: US-ANIPHARMA-2018-US-003138

PATIENT
  Age: 64 Year
  Sex: Male

DRUGS (6)
  1. METHADONE [Suspect]
     Active Substance: METHADONE HYDROCHLORIDE
  2. OXYCODONE [Suspect]
     Active Substance: OXYCODONE
  3. QUETIAPINE. [Suspect]
     Active Substance: QUETIAPINE
  4. METOPROLOL. [Suspect]
     Active Substance: METOPROLOL
  5. IBUPROFEN (NON-SPECIFIC) [Suspect]
     Active Substance: IBUPROFEN
  6. TIOTROPIUM [Suspect]
     Active Substance: TIOTROPIUM

REACTIONS (1)
  - Status epilepticus [Recovered/Resolved]
